FAERS Safety Report 15530439 (Version 1)
Quarter: 2018Q4

REPORT INFORMATION
  Report Type: Spontaneous
  Country: BE (occurrence: BE)
  Receive Date: 20181018
  Receipt Date: 20181018
  Transmission Date: 20190205
  Serious: Yes (Disabling, Other)
  Sender: FDA-Public Use
  Company Number: BE-FRESENIUS KABI-FK201810796

PATIENT
  Age: 28 Year
  Sex: Female

DRUGS (2)
  1. SUFENTANIL [Suspect]
     Active Substance: SUFENTANIL
     Indication: SPINAL ANAESTHESIA
     Dosage: 2,5 MCG
     Route: 037
  2. BUPIVACAINE (MANUFACTURER UNKNOWN) [Suspect]
     Active Substance: BUPIVACAINE
     Indication: SPINAL ANAESTHESIA
     Dosage: 0,5 PERCENT HYPERBARIC BUPIVACAINE
     Route: 037

REACTIONS (3)
  - Radiculopathy [Recovered/Resolved with Sequelae]
  - Maternal exposure during delivery [Recovered/Resolved with Sequelae]
  - Cauda equina syndrome [Recovered/Resolved with Sequelae]
